FAERS Safety Report 14481943 (Version 3)
Quarter: 2018Q1

REPORT INFORMATION
  Report Type: Spontaneous
  Country: JP (occurrence: JP)
  Receive Date: 20180202
  Receipt Date: 20180216
  Transmission Date: 20180509
  Serious: Yes (Hospitalization)
  Sender: FDA-Public Use
  Company Number: JP-009507513-1801JPN002908J

PATIENT
  Age: 79 Year
  Sex: Female

DRUGS (1)
  1. KEYTRUDA [Suspect]
     Active Substance: PEMBROLIZUMAB
     Indication: BLADDER TRANSITIONAL CELL CARCINOMA
     Dosage: 200 MG, Q3W
     Route: 041
     Dates: start: 20180118

REACTIONS (4)
  - Weight decreased [Unknown]
  - Metabolic disorder [Not Recovered/Not Resolved]
  - Thirst [Unknown]
  - Feeding disorder [Unknown]

NARRATIVE: CASE EVENT DATE: 201801
